FAERS Safety Report 20631340 (Version 1)
Quarter: 2022Q1

REPORT INFORMATION
  Report Type: Spontaneous
  Country: US (occurrence: US)
  Receive Date: 20220324
  Receipt Date: 20220324
  Transmission Date: 20220423
  Serious: Yes (Other)
  Sender: FDA-Public Use
  Company Number: US-JNJFOC-20220336085

PATIENT
  Age: 68 Year
  Sex: Female
  Weight: 76.726 kg

DRUGS (2)
  1. SIMPONI ARIA [Suspect]
     Active Substance: GOLIMUMAB
     Indication: Colitis ulcerative
     Route: 042
     Dates: start: 202101
  2. SIMPONI ARIA [Suspect]
     Active Substance: GOLIMUMAB
     Indication: Immune system disorder

REACTIONS (9)
  - Colitis ulcerative [Unknown]
  - Peripheral swelling [Recovering/Resolving]
  - Arthralgia [Unknown]
  - Vein disorder [Unknown]
  - Antiphospholipid antibodies positive [Unknown]
  - Off label use [Unknown]
  - Product use in unapproved indication [Unknown]
  - Chromaturia [Unknown]
  - Hypoaesthesia [Recovering/Resolving]

NARRATIVE: CASE EVENT DATE: 20211001
